FAERS Safety Report 25996841 (Version 1)
Quarter: 2025Q4

REPORT INFORMATION
  Report Type: Spontaneous
  Country: US (occurrence: US)
  Receive Date: 20251104
  Receipt Date: 20251104
  Transmission Date: 20260118
  Serious: Yes (Other)
  Sender: NOVO NORDISK
  Company Number: US-NOVOPROD-1545534

PATIENT
  Age: 54 Year
  Sex: Female

DRUGS (1)
  1. NOVOLOG MIX 70/30 [Suspect]
     Active Substance: INSULIN ASPART
     Indication: Product used for unknown indication
     Dosage: 72 IU, BID (40 IU IN THE MORNING, 32 IU AT NIGHT)
     Dates: start: 2005

REACTIONS (3)
  - Systemic lupus erythematosus [Unknown]
  - Cataract [Unknown]
  - Vision blurred [Unknown]

NARRATIVE: CASE EVENT DATE: 20080101
